FAERS Safety Report 11233634 (Version 5)
Quarter: 2015Q3

REPORT INFORMATION
  Report Type: Report from Study
  Country: CA (occurrence: CA)
  Receive Date: 20150702
  Receipt Date: 20150908
  Transmission Date: 20151125
  Serious: Yes (Life-Threatening, Hospitalization)
  Sender: FDA-Public Use
  Company Number: CA-PFIZER INC-2015212949

PATIENT
  Age: 27 Year
  Sex: Male
  Weight: 82 kg

DRUGS (6)
  1. ADASEPT CLEANSER [Concomitant]
     Indication: ROUTINE HEALTH MAINTENANCE
     Dosage: 1 APPLICATION AS NEEDED
     Route: 061
     Dates: start: 20130528
  2. ULTRAM [Concomitant]
     Active Substance: TRAMADOL HYDROCHLORIDE
     Indication: INSOMNIA
     Dosage: UNK
     Route: 048
  3. ZOLOFT [Concomitant]
     Active Substance: SERTRALINE HYDROCHLORIDE
     Indication: DEPRESSION
     Dosage: 50 MG, 1X/DAY
     Route: 048
     Dates: start: 201506
  4. TOFACITINIB CITRATE [Suspect]
     Active Substance: TOFACITINIB CITRATE
     Indication: PSORIASIS
     Dosage: 10 MG, 2X/DAY
     Route: 048
     Dates: start: 20111206, end: 20150616
  5. MARIJUANA [Suspect]
     Active Substance: CANNABIS SATIVA SUBSP. INDICA TOP
     Indication: INSOMNIA
     Dosage: 2-3 G, WEEKLY, INHALED
     Route: 055
     Dates: end: 20150616
  6. NEUTROGENA T/GEL SHAMPOO [Concomitant]
     Indication: PSORIASIS
     Dosage: 1 APPLICATION AS NEEDED
     Route: 061
     Dates: start: 20121201

REACTIONS (2)
  - Psychotic disorder [Unknown]
  - Suicide attempt [Recovered/Resolved]

NARRATIVE: CASE EVENT DATE: 20150622
